FAERS Safety Report 8080441-4 (Version None)
Quarter: 2012Q1

REPORT INFORMATION
  Report Type: 
  Country: None (occurrence: None)
  Receive Date: 20120130
  Receipt Date: 20120124
  Transmission Date: 20120608
  Serious: Yes (Other)
  Sender: FDA-Public Use
  Company Number: US-PFIZER INC-2012020023

PATIENT
  Sex: Female
  Weight: 102.4 kg

DRUGS (2)
  1. IBUPROFEN (ADVIL) [Suspect]
     Indication: MUSCULOSKELETAL DISCOMFORT
     Dosage: 400 MG, 4X/DAY
     Route: 048
     Dates: start: 20120123
  2. IBUPROFEN (ADVIL) [Suspect]
     Indication: HEADACHE
     Dosage: UNK
     Route: 048
     Dates: start: 20110101, end: 20110101

REACTIONS (2)
  - MUSCULOSKELETAL DISCOMFORT [None]
  - OVERDOSE [None]
